FAERS Safety Report 4608708-X (Version None)
Quarter: 2005Q1

REPORT INFORMATION
  Report Type: 
  Country: None (occurrence: None)
  Receive Date: 20050315
  Receipt Date: 20050303
  Transmission Date: 20050727
  Serious: Yes (Disabling)
  Sender: FDA-Public Use
  Company Number: FR-ROCHE-397306

PATIENT
  Sex: Male
  Weight: 3.4 kg

DRUGS (3)
  1. RIVOTRIL [Suspect]
     Indication: EPILEPSY
     Dates: start: 20021215
  2. LAMICTAL [Suspect]
     Indication: EPILEPSY
  3. LAMICTAL [Suspect]
     Dates: start: 20021215

REACTIONS (5)
  - DRUG EXPOSURE DURING PREGNANCY [None]
  - FACIAL DYSMORPHISM [None]
  - LIMB MALFORMATION [None]
  - RENAL AGENESIS [None]
  - URINARY TRACT MALFORMATION [None]
